FAERS Safety Report 18515895 (Version 2)
Quarter: 2021Q1

REPORT INFORMATION
  Report Type: Spontaneous
  Country: CA (occurrence: CA)
  Receive Date: 20201118
  Receipt Date: 20210323
  Transmission Date: 20210419
  Serious: Yes (Other)
  Sender: FDA-Public Use
  Company Number: CA-JNJFOC-20201110096

PATIENT
  Age: 31 Year
  Sex: Female

DRUGS (5)
  1. INFLIXIMAB, RECOMBINANT [Suspect]
     Active Substance: INFLIXIMAB
     Indication: COLITIS ULCERATIVE
     Route: 042
  2. PENTASA [Concomitant]
     Active Substance: MESALAMINE
     Route: 065
  3. PREDNISONE. [Suspect]
     Active Substance: PREDNISONE
     Indication: PRODUCT USED FOR UNKNOWN INDICATION
     Route: 042
  4. PREDNISONE. [Concomitant]
     Active Substance: PREDNISONE
     Route: 065
  5. PREDNISONE. [Concomitant]
     Active Substance: PREDNISONE
     Route: 065

REACTIONS (14)
  - Weight decreased [Recovered/Resolved]
  - Increased appetite [Recovered/Resolved]
  - Haematochezia [Recovered/Resolved]
  - Rectal haemorrhage [Recovered/Resolved]
  - Weight increased [Recovered/Resolved]
  - Diarrhoea haemorrhagic [Recovered/Resolved]
  - Bowel movement irregularity [Recovered/Resolved]
  - Weight fluctuation [Not Recovered/Not Resolved]
  - Abdominal pain [Recovered/Resolved]
  - Heart rate decreased [Recovered/Resolved]
  - Colitis ulcerative [Recovered/Resolved]
  - Off label use [Not Recovered/Not Resolved]
  - Defaecation urgency [Recovered/Resolved]
  - Fatigue [Recovered/Resolved]
